FAERS Safety Report 11877793 (Version 4)
Quarter: 2016Q1

REPORT INFORMATION
  Report Type: Report from Study
  Country: US (occurrence: US)
  Receive Date: 20151230
  Receipt Date: 20160323
  Transmission Date: 20160526
  Serious: No
  Sender: FDA-Public Use
  Company Number: PHHY2015US122459

PATIENT
  Age: 39 Year
  Sex: Male

DRUGS (1)
  1. GILENYA [Suspect]
     Active Substance: FINGOLIMOD HYDROCHLORIDE
     Indication: MULTIPLE SCLEROSIS
     Dosage: UNK UNK, QD
     Route: 048

REACTIONS (9)
  - Lymphopenia [Unknown]
  - Disease progression [Recovered/Resolved]
  - Alanine aminotransferase increased [Unknown]
  - Muscular weakness [Recovered/Resolved]
  - Aspartate aminotransferase increased [Unknown]
  - Micturition urgency [Unknown]
  - Gait disturbance [Unknown]
  - White blood cell count decreased [Unknown]
  - Vitamin D deficiency [Unknown]

NARRATIVE: CASE EVENT DATE: 20150508
